FAERS Safety Report 8317287-5 (Version None)
Quarter: 2012Q2

REPORT INFORMATION
  Report Type: 
  Country: None (occurrence: None)
  Receive Date: 20120425
  Receipt Date: 20120409
  Transmission Date: 20120825
  Serious: Yes (Death)
  Sender: FDA-Public Use
  Company Number: 2012DZ0132

PATIENT
  Age: 1 Year
  Sex: Male

DRUGS (6)
  1. VITAMIN D [Concomitant]
  2. VITAMIN A, D, E, K COMPLEX [Concomitant]
  3. LASILIX (FUROSEMIDE) [Concomitant]
  4. VITAMIN K TAB [Concomitant]
  5. ORFADIN [Suspect]
     Indication: TYROSINAEMIA
     Dosage: 1,63 MG/KG (5 MG, 3 IN 1 D), ORAL
     Route: 048
     Dates: start: 20111001
  6. ALDACTONE [Concomitant]

REACTIONS (1)
  - DEATH [None]
